FAERS Safety Report 13708735 (Version 2)
Quarter: 2017Q3

REPORT INFORMATION
  Report Type: Spontaneous
  Country: AR (occurrence: AR)
  Receive Date: 20170630
  Receipt Date: 20170815
  Transmission Date: 20171127
  Serious: Yes (Death, Hospitalization, Other)
  Sender: FDA-Public Use
  Company Number: AR-ABBVIE-17P-007-2025401-00

PATIENT
  Sex: Female

DRUGS (1)
  1. VENETOCLAX. [Suspect]
     Active Substance: VENETOCLAX
     Indication: PRODUCT USED FOR UNKNOWN INDICATION
     Route: 048
     Dates: start: 20170526

REACTIONS (11)
  - Nervous system disorder [Fatal]
  - Fungal infection [Fatal]
  - Cerebral ischaemia [Fatal]
  - Pyrexia [Unknown]
  - Cardio-respiratory arrest [Fatal]
  - Cytopenia [Unknown]
  - Lung infiltration [Fatal]
  - Bone marrow infiltration [Unknown]
  - Lung infiltration [Unknown]
  - Gastrointestinal haemorrhage [Fatal]
  - Fluid overload [Unknown]
